FAERS Safety Report 10031036 (Version 1)
Quarter: 2014Q1

REPORT INFORMATION
  Report Type: Spontaneous
  Country: US (occurrence: US)
  Receive Date: 20140324
  Receipt Date: 20140324
  Transmission Date: 20141002
  Serious: Yes (Other)
  Sender: FDA-Public Use
  Company Number: US-AMGEN-USASP2014019980

PATIENT
  Age: 55 Year
  Sex: Female

DRUGS (2)
  1. ENBREL [Suspect]
     Indication: RHEUMATOID ARTHRITIS
     Dosage: 50 MG, QWK
     Route: 065
     Dates: start: 20000101, end: 20140310
  2. HUMIRA [Concomitant]
     Dosage: UNK

REACTIONS (4)
  - Arterial catheterisation [Recovered/Resolved]
  - Feeling abnormal [Recovered/Resolved]
  - Arthralgia [Recovered/Resolved]
  - Drug ineffective [Recovered/Resolved]
